FAERS Safety Report 7901733-2 (Version None)
Quarter: 2011Q4

REPORT INFORMATION
  Report Type: 
  Country: None (occurrence: None)
  Receive Date: 20111108
  Receipt Date: 20111102
  Transmission Date: 20120403
  Serious: Yes (Other)
  Sender: FDA-Public Use
  Company Number: US-JNJFOC-20110900173

PATIENT
  Age: 62 Year
  Sex: Male

DRUGS (3)
  1. NICORETTE [Suspect]
     Indication: SMOKING CESSATION THERAPY
     Dosage: EIGHT TO TEN PIECES A DAY, FOR APPROXIMATELY 11 YEARS
     Route: 065
  2. NICORETTE [Suspect]
     Indication: SMOKING CESSATION THERAPY
     Dosage: EIGHT TO TEN PIECES A DAY, FOR APPROXIMATELY 11 YEARS
     Route: 065
  3. NICORETTE (MINT) [Suspect]
     Indication: SMOKING CESSATION THERAPY
     Dosage: EIGHT TO TEN PIECES A DAY, FOR APPROXIMATELY 11 YEARS
     Route: 065

REACTIONS (4)
  - NICOTINE DEPENDENCE [None]
  - INTENTIONAL DRUG MISUSE [None]
  - DRUG ADMINISTRATION ERROR [None]
  - THROAT IRRITATION [None]
